FAERS Safety Report 5879506-4 (Version None)
Quarter: 2008Q3

REPORT INFORMATION
  Report Type: 
  Country: None (occurrence: None)
  Receive Date: 20080912
  Receipt Date: 20080903
  Transmission Date: 20090109
  Serious: Yes (Other)
  Sender: FDA-Public Use
  Company Number: US-JNJFOC-20080204816

PATIENT
  Sex: Male
  Weight: 58.51 kg

DRUGS (2)
  1. REMICADE [Suspect]
     Indication: CROHN'S DISEASE
     Dosage: RECEIVED THREE DOSES
     Route: 042
  2. MERCAPTOPURINE [Concomitant]

REACTIONS (2)
  - DRUG INEFFECTIVE [None]
  - METASTATIC MALIGNANT MELANOMA [None]
